FAERS Safety Report 16842928 (Version 1)
Quarter: 2019Q3

REPORT INFORMATION
  Report Type: Spontaneous
  Country: US (occurrence: US)
  Receive Date: 20190801
  Receipt Date: 20190801
  Transmission Date: 20191005
  Serious: No
  Sender: FDA-Public Use
  Company Number: None

PATIENT
  Age: 83 Year
  Sex: Female

DRUGS (15)
  1. RESTASIS [Concomitant]
     Active Substance: CYCLOSPORINE
  2. SPIRONOLACTONE. [Concomitant]
     Active Substance: SPIRONOLACTONE
  3. XOLAIR [Suspect]
     Active Substance: OMALIZUMAB
     Indication: PRURITUS
     Route: 058
  4. DOK [Concomitant]
     Active Substance: DOCUSATE SODIUM
  5. ELIQUIS [Concomitant]
     Active Substance: APIXABAN
  6. BUMETANIDE. [Concomitant]
     Active Substance: BUMETANIDE
  7. CALTRATE WITH VITAMIN D [Concomitant]
     Active Substance: CALCIUM CARBONATE\CHOLECALCIFEROL
  8. MULTIVITAMIN [Concomitant]
     Active Substance: VITAMINS
  9. TRIAMCINOLON CREAM [Concomitant]
  10. ALLEGRA [Concomitant]
     Active Substance: FEXOFENADINE HYDROCHLORIDE
  11. LEVOTHYROXINE. [Concomitant]
     Active Substance: LEVOTHYROXINE
  12. NEXIUM [Concomitant]
     Active Substance: ESOMEPRAZOLE MAGNESIUM
  13. D3 SUPER STR [Concomitant]
  14. PATADAY [Concomitant]
     Active Substance: OLOPATADINE HYDROCHLORIDE
  15. VITAMIN B12 [Concomitant]
     Active Substance: CYANOCOBALAMIN

REACTIONS (4)
  - Skin haemorrhage [None]
  - Therapy cessation [None]
  - Pruritus [None]
  - Scratch [None]

NARRATIVE: CASE EVENT DATE: 20190724
